FAERS Safety Report 5187544-2 (Version None)
Quarter: 2006Q4

REPORT INFORMATION
  Report Type: 
  Country: None (occurrence: None)
  Receive Date: 20061220
  Receipt Date: 20060118
  Transmission Date: 20070319
  Serious: No
  Sender: FDA-Public Use
  Company Number: US-AMGEN-US165365

PATIENT
  Age: 38 Year
  Sex: Male
  Weight: 127.1 kg

DRUGS (2)
  1. ENBREL [Suspect]
     Indication: PSORIASIS
     Route: 065
     Dates: start: 20051025
  2. CORTICOSTEROID NOS [Concomitant]
     Route: 061

REACTIONS (1)
  - THERAPEUTIC RESPONSE DECREASED [None]
